FAERS Safety Report 19138455 (Version 1)
Quarter: 2021Q2

REPORT INFORMATION
  Report Type: Spontaneous
  Country: US (occurrence: US)
  Receive Date: 20210415
  Receipt Date: 20210415
  Transmission Date: 20210717
  Serious: Yes (Other)
  Sender: FDA-Public Use
  Company Number: US-ACCORD-186062

PATIENT
  Sex: Male

DRUGS (5)
  1. HYOSCYAMINE/HYOSCYAMINE HYDROBROMIDE/HYOSCYAMINE SULFATE [Concomitant]
     Active Substance: HYOSCYAMINE
  2. COMBIGAN [Concomitant]
     Active Substance: BRIMONIDINE TARTRATE\TIMOLOL MALEATE
  3. AMITIZA [Concomitant]
     Active Substance: LUBIPROSTONE
  4. OXYBUTYNIN/OXYBUTYNIN HYDROCHLORIDE [Suspect]
     Active Substance: OXYBUTYNIN
     Indication: HYPERTONIC BLADDER
     Dosage: EXTENDED RELEASE
     Route: 048
     Dates: start: 20200613
  5. XELPROS [Concomitant]
     Active Substance: LATANOPROST

REACTIONS (3)
  - Hallucination [Unknown]
  - Back pain [Recovering/Resolving]
  - Sleep disorder [Unknown]
